FAERS Safety Report 26141013 (Version 1)
Quarter: 2025Q4

REPORT INFORMATION
  Report Type: Report from Study
  Country: JP (occurrence: JP)
  Receive Date: 20251210
  Receipt Date: 20251210
  Transmission Date: 20260117
  Serious: Yes (Death, Other)
  Sender: PFIZER
  Company Number: JP-PFIZER INC-202500240555

PATIENT

DRUGS (8)
  1. METHOTREXATE SODIUM [Suspect]
     Active Substance: METHOTREXATE SODIUM
     Indication: Central nervous system lymphoma
     Dosage: HD, BIWEEKLY FOR SIX CYCLES (INDUCTION)
  2. METHOTREXATE SODIUM [Suspect]
     Active Substance: METHOTREXATE SODIUM
     Dosage: HD, MONTHLY FOR TWO CYCLES (CONSOLIDATION)
  3. RITUXIMAB [Suspect]
     Active Substance: RITUXIMAB
     Indication: Central nervous system lymphoma
     Dosage: BIWEEKLY FOR SIX CYCLES (INDUCTION)
  4. RITUXIMAB [Suspect]
     Active Substance: RITUXIMAB
     Dosage: MONTHLY FOR TWO CYCLES (CONSOLIDATION)
  5. PROCARBAZINE [Suspect]
     Active Substance: PROCARBAZINE
     Indication: Central nervous system lymphoma
     Dosage: BIWEEKLY FOR SIX CYCLES (INDUCTION)
  6. PROCARBAZINE [Suspect]
     Active Substance: PROCARBAZINE
     Dosage: MONTHLY FOR TWO CYCLES (CONSOLIDATION)
  7. VINCRISTINE [Suspect]
     Active Substance: VINCRISTINE
     Indication: Central nervous system lymphoma
     Dosage: BIWEEKLY FOR SIX CYCLES (INDUCTION)
  8. VINCRISTINE [Suspect]
     Active Substance: VINCRISTINE
     Dosage: MONTHLY FOR TWO CYCLES (CONSOLIDATION)

REACTIONS (1)
  - Myocardial infarction [Fatal]
